FAERS Safety Report 25246649 (Version 1)
Quarter: 2025Q2

REPORT INFORMATION
  Report Type: Spontaneous
  Country: US (occurrence: US)
  Receive Date: 20250428
  Receipt Date: 20250428
  Transmission Date: 20250716
  Serious: No
  Sender: CORIUM
  Company Number: US-MIMS-CORIMC-6084

PATIENT

DRUGS (1)
  1. AZSTARYS [Suspect]
     Active Substance: DEXMETHYLPHENIDATE HYDROCHLORIDE\SERDEXMETHYLPHENIDATE CHLORIDE
     Indication: Attention deficit hyperactivity disorder
     Dosage: 39.2 MG/7.8 MG, QD
     Route: 048
     Dates: start: 2024

REACTIONS (6)
  - Abnormal behaviour [Unknown]
  - Abdominal pain upper [Unknown]
  - Wrong technique in product usage process [Unknown]
  - Product physical issue [Unknown]
  - Product container issue [Unknown]
  - Incorrect dose administered [Unknown]

NARRATIVE: CASE EVENT DATE: 20250101
